FAERS Safety Report 10156366 (Version 1)
Quarter: 2014Q2

REPORT INFORMATION
  Report Type: Spontaneous
  Country: US (occurrence: US)
  Receive Date: 20140507
  Receipt Date: 20140507
  Transmission Date: 20141212
  Serious: Yes (Other)
  Sender: FDA-Public Use
  Company Number: US-BRISTOL-MYERS SQUIBB COMPANY-20684213

PATIENT
  Age: 69 Year
  Sex: Female

DRUGS (5)
  1. COUMADIN [Suspect]
  2. LOVASTATIN [Concomitant]
  3. CYMBALTA [Concomitant]
  4. METOPROLOL [Concomitant]
     Dosage: 1/2 TABLET BID
  5. LASIX [Concomitant]

REACTIONS (1)
  - Carotid artery occlusion [Unknown]
